FAERS Safety Report 18716965 (Version 1)
Quarter: 2021Q1

REPORT INFORMATION
  Report Type: Spontaneous
  Country: US (occurrence: US)
  Receive Date: 20210107
  Receipt Date: 20210107
  Transmission Date: 20210419
  Serious: No
  Sender: FDA-Public Use
  Company Number: None

PATIENT
  Sex: Male

DRUGS (1)
  1. NUCALA [Suspect]
     Active Substance: MEPOLIZUMAB
     Indication: ASTHMA
     Route: 058
     Dates: start: 20201211

REACTIONS (5)
  - Respiratory tract congestion [None]
  - Drug ineffective [None]
  - Anosmia [None]
  - Ageusia [None]
  - Dyspnoea [None]
